FAERS Safety Report 13645142 (Version 1)
Quarter: 2017Q2

REPORT INFORMATION
  Report Type: Spontaneous
  Country: US (occurrence: US)
  Receive Date: 20170612
  Receipt Date: 20170612
  Transmission Date: 20170830
  Serious: No
  Sender: FDA-Public Use
  Company Number: US-ROCHE-1463434

PATIENT
  Sex: Female

DRUGS (1)
  1. XELODA [Suspect]
     Active Substance: CAPECITABINE
     Indication: COLON CANCER STAGE III
     Dosage: 2 WEEKS ON 1 WEEK OFF
     Route: 048
     Dates: start: 201305, end: 201311

REACTIONS (12)
  - Palmar-plantar erythrodysaesthesia syndrome [Recovering/Resolving]
  - Fatigue [Recovered/Resolved]
  - Appetite disorder [Recovered/Resolved]
  - Visual impairment [Recovered/Resolved]
  - Dysstasia [Unknown]
  - Nerve injury [Not Recovered/Not Resolved]
  - Muscle spasms [Recovered/Resolved]
  - Peripheral swelling [Not Recovered/Not Resolved]
  - Asthenia [Recovered/Resolved]
  - Hypoaesthesia [Not Recovered/Not Resolved]
  - Paraesthesia [Not Recovered/Not Resolved]
  - Dysgeusia [Recovered/Resolved]
